FAERS Safety Report 16992157 (Version 2)
Quarter: 2019Q4

REPORT INFORMATION
  Report Type: Spontaneous
  Country: JP (occurrence: JP)
  Receive Date: 20191105
  Receipt Date: 20191225
  Transmission Date: 20200122
  Serious: Yes (Death, Other)
  Sender: FDA-Public Use
  Company Number: JP-TEVA-2019-JP-1133048

PATIENT
  Age: 6 Decade
  Sex: Female

DRUGS (2)
  1. OBINUTUZUMAB. [Suspect]
     Active Substance: OBINUTUZUMAB
     Indication: B-CELL LYMPHOMA
     Route: 042
  2. BENDAMUSTINE HYDROCHLORIDE. [Suspect]
     Active Substance: BENDAMUSTINE HYDROCHLORIDE
     Indication: B-CELL LYMPHOMA
     Route: 042

REACTIONS (4)
  - Sepsis [Fatal]
  - Drug eruption [Recovering/Resolving]
  - Disseminated intravascular coagulation [Fatal]
  - Enteritis infectious [Recovering/Resolving]

NARRATIVE: CASE EVENT DATE: 20190814
